FAERS Safety Report 5519409-8 (Version None)
Quarter: 2007Q4

REPORT INFORMATION
  Report Type: 
  Country: None (occurrence: None)
  Receive Date: 20071116
  Receipt Date: 20071105
  Transmission Date: 20080405
  Serious: Yes (Hospitalization)
  Sender: FDA-Public Use
  Company Number: FR-AMGEN-UK227473

PATIENT
  Sex: Male

DRUGS (1)
  1. KINERET [Suspect]
     Indication: JUVENILE ARTHRITIS
     Route: 065
     Dates: start: 20060718

REACTIONS (1)
  - VARICELLA [None]
